FAERS Safety Report 4851099-X (Version None)
Quarter: 2005Q4

REPORT INFORMATION
  Report Type: 
  Country: None (occurrence: None)
  Receive Date: 20051208
  Receipt Date: 20051124
  Transmission Date: 20060501
  Serious: Yes (Hospitalization, Other)
  Sender: FDA-Public Use
  Company Number: CIP05002739

PATIENT
  Sex: Female

DRUGS (1)
  1. ACTONEL [Suspect]
     Indication: OSTEOPOROSIS
     Dosage: 35 MG ONE ONLY, ORAL
     Route: 048
     Dates: start: 20051118, end: 20051118

REACTIONS (3)
  - CHEST PAIN [None]
  - SYNCOPE [None]
  - VOMITING [None]
